FAERS Safety Report 12524710 (Version 3)
Quarter: 2016Q3

REPORT INFORMATION
  Report Type: Spontaneous
  Country: US (occurrence: US)
  Receive Date: 20160704
  Receipt Date: 20160809
  Transmission Date: 20161109
  Serious: Yes (Other)
  Sender: FDA-Public Use
  Company Number: US-ASTRAZENECA-2016SE67424

PATIENT
  Age: 821 Month
  Sex: Male
  Weight: 81.6 kg

DRUGS (11)
  1. GLUCOSAMINE HCI WITH MSM [Concomitant]
     Indication: ARTHROPATHY
     Route: 048
     Dates: start: 2008
  2. BRILINTA [Suspect]
     Active Substance: TICAGRELOR
     Indication: STENT PLACEMENT
     Route: 048
     Dates: start: 201502, end: 20150714
  3. LISINOPRIL. [Suspect]
     Active Substance: LISINOPRIL
     Indication: CARDIAC DISORDER
     Route: 048
     Dates: start: 201502
  4. METOPROLOL SUCCINATE. [Suspect]
     Active Substance: METOPROLOL SUCCINATE
     Indication: BLOOD PRESSURE ABNORMAL
     Route: 048
     Dates: start: 2001
  5. BRILINTA [Suspect]
     Active Substance: TICAGRELOR
     Indication: ACUTE CORONARY SYNDROME
     Route: 048
     Dates: start: 201502, end: 20150714
  6. BRILINTA [Suspect]
     Active Substance: TICAGRELOR
     Indication: STENT PLACEMENT
     Route: 048
     Dates: start: 20160724
  7. BABY ASIPIRIN [Concomitant]
     Indication: CARDIAC DISORDER
     Route: 048
     Dates: start: 2001
  8. BRILINTA [Suspect]
     Active Substance: TICAGRELOR
     Indication: ACUTE CORONARY SYNDROME
     Route: 048
     Dates: start: 20160724
  9. ATORVASTATIN [Concomitant]
     Active Substance: ATORVASTATIN
     Indication: BLOOD CHOLESTEROL ABNORMAL
     Route: 048
     Dates: start: 2001
  10. COQ10 [Concomitant]
     Active Substance: UBIDECARENONE
     Indication: BLOOD CHOLESTEROL ABNORMAL
     Dosage: 200.0MG UNKNOWN
     Route: 048
     Dates: start: 2008
  11. MULTIVITAMIN [Concomitant]
     Active Substance: VITAMINS
     Indication: CARDIAC DISORDER
     Route: 048
     Dates: start: 2008

REACTIONS (6)
  - Transient ischaemic attack [Unknown]
  - Contusion [Unknown]
  - Inguinal hernia [Unknown]
  - Bleeding time prolonged [Unknown]
  - Haemorrhage [Unknown]
  - Therapy cessation [Unknown]

NARRATIVE: CASE EVENT DATE: 201504
